FAERS Safety Report 4685870-4 (Version None)
Quarter: 2005Q2

REPORT INFORMATION
  Report Type: 
  Country: None (occurrence: None)
  Receive Date: 20050606
  Receipt Date: 20050606
  Transmission Date: 20051028
  Serious: No
  Sender: FDA-Public Use
  Company Number: None

PATIENT
  Sex: Female
  Weight: 14.9687 kg

DRUGS (1)
  1. OVIDE [Suspect]
     Indication: LICE INFESTATION
     Dosage: 2OZ

REACTIONS (4)
  - DRUG EFFECT DECREASED [None]
  - LICE INFESTATION [None]
  - POISONING [None]
  - SOMNOLENCE [None]
